FAERS Safety Report 7289825-5 (Version None)
Quarter: 2011Q1

REPORT INFORMATION
  Report Type: 
  Country: None (occurrence: None)
  Receive Date: 20110214
  Receipt Date: 20110205
  Transmission Date: 20110831
  Serious: Yes (Hospitalization)
  Sender: FDA-Public Use
  Company Number: US-BIOGENIDEC-2010BI040151

PATIENT
  Age: 44 Year
  Sex: Female

DRUGS (2)
  1. H1N1 VACCINE [Concomitant]
     Dates: start: 20101109
  2. AVONEX [Suspect]
     Indication: MULTIPLE SCLEROSIS
     Route: 030
     Dates: start: 20060107

REACTIONS (1)
  - MULTIPLE SCLEROSIS RELAPSE [None]
